FAERS Safety Report 7172677-1 (Version None)
Quarter: 2010Q4

REPORT INFORMATION
  Report Type: 
  Country: None (occurrence: None)
  Receive Date: 20101217
  Receipt Date: 20101213
  Transmission Date: 20110411
  Serious: Yes (Hospitalization, Other)
  Sender: FDA-Public Use
  Company Number: US-AMGEN-USASP2010005394

PATIENT

DRUGS (11)
  1. NPLATE [Suspect]
     Indication: IDIOPATHIC THROMBOCYTOPENIC PURPURA
     Dosage: 3 A?G/KG, UNK
     Route: 058
     Dates: start: 20101108
  2. PREDNISONE [Concomitant]
     Dosage: 100 MG, QD
  3. WELCHOL [Concomitant]
     Dosage: 625 MG, BID
  4. LISINOPRIL [Concomitant]
     Dosage: 20 MG, QD
  5. HYDROCHLOROTHIAZIDE [Concomitant]
     Dosage: 25 MG, QD
  6. SYNTHROID [Concomitant]
     Dosage: 50 A?G, QD
  7. NEXIUM [Concomitant]
     Dosage: 20 MG, QD
  8. LOVAZA [Concomitant]
     Dosage: 1 G, BID
  9. JANUVIA [Concomitant]
     Dosage: 50 MG, QD
  10. HUMALOG [Concomitant]
  11. LANTUS [Concomitant]

REACTIONS (3)
  - EPISTAXIS [None]
  - HELICOBACTER INFECTION [None]
  - IDIOPATHIC THROMBOCYTOPENIC PURPURA [None]
